FAERS Safety Report 4922718-4 (Version None)
Quarter: 2006Q1

REPORT INFORMATION
  Report Type: 
  Country: None (occurrence: None)
  Receive Date: 20060224
  Receipt Date: 20050803
  Transmission Date: 20060701
  Serious: Yes (Death, Hospitalization)
  Sender: FDA-Public Use
  Company Number: US-MERCK-0508USA01137

PATIENT
  Age: 61 Year
  Sex: Male
  Weight: 115 kg

DRUGS (3)
  1. VIOXX [Suspect]
     Route: 048
     Dates: start: 20000101, end: 20030814
  2. ZOCOR [Concomitant]
     Route: 065
  3. ZETIA [Concomitant]
     Route: 065

REACTIONS (26)
  - ANGINA PECTORIS [None]
  - ANOXIC ENCEPHALOPATHY [None]
  - AORTIC ARTERIOSCLEROSIS [None]
  - CARDIAC ARREST [None]
  - CARDIAC FAILURE CONGESTIVE [None]
  - CARDIOMEGALY [None]
  - CORONARY ARTERY DISEASE [None]
  - DIABETES MELLITUS [None]
  - DIVERTICULUM [None]
  - GASTROOESOPHAGEAL REFLUX DISEASE [None]
  - ISCHAEMIC CARDIOMYOPATHY [None]
  - LOSS OF CONSCIOUSNESS [None]
  - MYOCARDIAL INFARCTION [None]
  - NECK INJURY [None]
  - OEDEMA PERIPHERAL [None]
  - PNEUMONIA [None]
  - PROTEINURIA [None]
  - RENAL CYST [None]
  - RENAL DISORDER [None]
  - RENAL FAILURE ACUTE [None]
  - RHABDOMYOLYSIS [None]
  - SEPSIS [None]
  - THROMBOPHLEBITIS [None]
  - UNRESPONSIVE TO PAIN STIMULI [None]
  - VENTRICULAR EXTRASYSTOLES [None]
  - VENTRICULAR FIBRILLATION [None]
